FAERS Safety Report 15189095 (Version 1)
Quarter: 2018Q3

REPORT INFORMATION
  Report Type: Spontaneous
  Country: US (occurrence: US)
  Receive Date: 20180724
  Receipt Date: 20180724
  Transmission Date: 20181010
  Serious: No
  Sender: FDA-Public Use
  Company Number: US-HORIZON-BUP-0041-2018

PATIENT
  Age: 1 Month
  Sex: Female

DRUGS (1)
  1. BUPHENYL [Suspect]
     Active Substance: SODIUM PHENYLBUTYRATE
     Indication: UREA CYCLE DISORDER
     Dosage: 4 DOSES A DAY
     Dates: start: 201807

REACTIONS (1)
  - Vomiting [Unknown]
